FAERS Safety Report 15407485 (Version 1)
Quarter: 2018Q4

REPORT INFORMATION
  Report Type: Spontaneous
  Country: US (occurrence: US)
  Receive Date: 20180920
  Receipt Date: 20180920
  Transmission Date: 20190204
  Serious: No
  Sender: FDA-Public Use
  Company Number: US-AMARIN PHARMA, INC.-2018AMR000016

PATIENT
  Sex: Female

DRUGS (3)
  1. VASCEPA [Suspect]
     Active Substance: ICOSAPENT ETHYL
     Indication: PRODUCT USED FOR UNKNOWN INDICATION
     Route: 065
  2. CIPRO [Suspect]
     Active Substance: CIPROFLOXACIN HYDROCHLORIDE
     Indication: DIVERTICULITIS
  3. METRO-SOMETHING (METRONIDAZOLE) [Suspect]
     Active Substance: METRONIDAZOLE
     Indication: DIVERTICULITIS

REACTIONS (5)
  - Fatigue [Unknown]
  - Diarrhoea [Unknown]
  - Diverticulitis [Unknown]
  - Product dose omission [Unknown]
  - Nausea [Unknown]
